FAERS Safety Report 14647329 (Version 4)
Quarter: 2018Q2

REPORT INFORMATION
  Report Type: Spontaneous
  Country: US (occurrence: US)
  Receive Date: 20180316
  Receipt Date: 20180422
  Transmission Date: 20180711
  Serious: Yes (Death, Hospitalization, Other)
  Sender: FDA-Public Use
  Company Number: US-APOPHARMA USA, INC.-2018AP008247

PATIENT
  Age: 63 Year
  Sex: Male

DRUGS (2)
  1. FLUDARABINE [Concomitant]
     Active Substance: FLUDARABINE PHOSPHATE
     Indication: STEM CELL TRANSPLANT
     Route: 065
  2. ALKERAN [Suspect]
     Active Substance: MELPHALAN
     Indication: STEM CELL TRANSPLANT
     Route: 065

REACTIONS (15)
  - Atrial fibrillation [Unknown]
  - Cachexia [Unknown]
  - Delirium [Unknown]
  - Respiratory failure [Unknown]
  - Acute kidney injury [Unknown]
  - Pyrexia [Unknown]
  - Tubulointerstitial nephritis [Not Recovered/Not Resolved]
  - Engraftment syndrome [Unknown]
  - Fall [Unknown]
  - Decreased appetite [Unknown]
  - Cholecystitis infective [Unknown]
  - Meningoencephalitis herpetic [Not Recovered/Not Resolved]
  - Haemolysis [Unknown]
  - Cardiac arrest [Fatal]
  - Viral myocarditis [Not Recovered/Not Resolved]
